FAERS Safety Report 8494429-2 (Version None)
Quarter: 2012Q3

REPORT INFORMATION
  Report Type: 
  Country: None (occurrence: None)
  Receive Date: 20120709
  Receipt Date: 20120627
  Transmission Date: 20120928
  Serious: Yes (Hospitalization)
  Sender: FDA-Public Use
  Company Number: US-US-EMD SERONO, INC.-7129914

PATIENT
  Sex: Male
  Weight: 77 kg

DRUGS (7)
  1. UNSPECIFIED HIGH BLOOD PRESSURE MEDICATION [Concomitant]
     Indication: HYPERTENSION
  2. CISPLATIN [Concomitant]
     Indication: PRODUCT USED FOR UNKNOWN INDICATION
  3. ASPIRIN [Concomitant]
     Indication: PRODUCT USED FOR UNKNOWN INDICATION
  4. REBIF [Suspect]
     Indication: PROGRESSIVE MULTIPLE SCLEROSIS
     Route: 058
     Dates: start: 20050909
  5. AMANTADINE HCL [Concomitant]
     Indication: PRODUCT USED FOR UNKNOWN INDICATION
  6. MULTI-VITAMIN [Concomitant]
     Indication: PRODUCT USED FOR UNKNOWN INDICATION
  7. FINASTERIDE [Concomitant]
     Indication: SUPPLEMENTATION THERAPY

REACTIONS (7)
  - SCAR [None]
  - CLOSTRIDIUM DIFFICILE COLITIS [None]
  - SEPSIS [None]
  - CELLULITIS [None]
  - SINUSITIS [None]
  - DEHYDRATION [None]
  - ASTHENIA [None]
